FAERS Safety Report 5433183-5 (Version None)
Quarter: 2007Q3

REPORT INFORMATION
  Report Type: 
  Country: None (occurrence: None)
  Receive Date: 20070831
  Receipt Date: 20070718
  Transmission Date: 20080115
  Serious: No
  Sender: FDA-Public Use
  Company Number: A0664504A

PATIENT
  Sex: Female

DRUGS (2)
  1. ALLI [Suspect]
     Dates: start: 20070709, end: 20070715
  2. UNSPECIFIED MEDICATION [Concomitant]
     Indication: PANIC ATTACK

REACTIONS (2)
  - ANXIETY [None]
  - PANIC ATTACK [None]
